FAERS Safety Report 10470614 (Version 1)
Quarter: 2014Q3

REPORT INFORMATION
  Report Type: Spontaneous
  Country: IT (occurrence: IT)
  Receive Date: 20140923
  Receipt Date: 20140923
  Transmission Date: 20150326
  Serious: Yes (Hospitalization, Other)
  Sender: FDA-Public Use
  Company Number: IT-TEVA-510346ISR

PATIENT
  Age: 50 Year
  Sex: Female
  Weight: 46 kg

DRUGS (3)
  1. LORAZEPAM. [Suspect]
     Active Substance: LORAZEPAM
     Indication: SUICIDE ATTEMPT
     Dosage: 17.5 MG TOTAL
     Route: 048
     Dates: start: 20140912, end: 20140912
  2. LEXOTAN - 2,5MG/ML GOCCE ORALI, SOLUZIONE - ROCHE S.P.A. [Suspect]
     Active Substance: BROMAZEPAM
     Indication: SUICIDE ATTEMPT
     Dosage: 10 ML TOTAL
     Route: 048
     Dates: start: 20140912, end: 20140912
  3. MINIAS -2,5 MG/ML GOCCE ORALI, SOLUZIONE - BAYER S.P.A. [Suspect]
     Active Substance: LORMETAZEPAM
     Indication: SUICIDE ATTEMPT
     Dosage: 10 ML TOTAL
     Route: 048
     Dates: start: 20140912, end: 20140912

REACTIONS (6)
  - Bradyphrenia [Recovered/Resolved]
  - Asthenia [Recovered/Resolved]
  - Bradykinesia [Recovered/Resolved]
  - Drug abuse [Recovered/Resolved]
  - Dysstasia [Recovered/Resolved]
  - Somnolence [Recovered/Resolved]

NARRATIVE: CASE EVENT DATE: 20140912
